FAERS Safety Report 7092142-X (Version None)
Quarter: 2010Q4

REPORT INFORMATION
  Report Type: 
  Country: None (occurrence: None)
  Receive Date: 20101109
  Receipt Date: 20101102
  Transmission Date: 20110411
  Serious: Yes (Death, Hospitalization)
  Sender: FDA-Public Use
  Company Number: US-GILEAD-2010-0033163

PATIENT
  Sex: Male

DRUGS (2)
  1. LETAIRIS [Suspect]
     Indication: PORTOPULMONARY HYPERTENSION
     Route: 048
     Dates: start: 20100826, end: 20101026
  2. SILDENAFIL CITRATE [Concomitant]
     Indication: PORTOPULMONARY HYPERTENSION
     Dates: start: 20100801

REACTIONS (2)
  - DEATH [None]
  - LUNG DISORDER [None]
